FAERS Safety Report 18762894 (Version 1)
Quarter: 2021Q1

REPORT INFORMATION
  Report Type: Spontaneous
  Country: US (occurrence: US)
  Receive Date: 20210120
  Receipt Date: 20210120
  Transmission Date: 20210419
  Serious: No
  Sender: FDA-Public Use
  Company Number: US-ASTRAZENECA-2020SF74172

PATIENT
  Sex: Female

DRUGS (1)
  1. SYMBICORT [Suspect]
     Active Substance: BUDESONIDE\FORMOTEROL FUMARATE DIHYDRATE
     Dosage: 80/4.5 UG, UNKNOWN DOSE AND FREQUENCY UNKNOWN
     Route: 055

REACTIONS (3)
  - Device malfunction [Unknown]
  - Visual impairment [Unknown]
  - Anxiety [Not Recovered/Not Resolved]
